FAERS Safety Report 7023142-3 (Version None)
Quarter: 2010Q3

REPORT INFORMATION
  Report Type: 
  Country: None (occurrence: None)
  Receive Date: 20100930
  Receipt Date: 20100929
  Transmission Date: 20110219
  Serious: Yes (Disabling, Other)
  Sender: FDA-Public Use
  Company Number: CHPA2010DE11335

PATIENT
  Age: 69 Year
  Sex: Female
  Weight: 69 kg

DRUGS (6)
  1. NICOTINELL TTS 30 (NCH) [Suspect]
     Indication: SMOKING CESSATION THERAPY
     Dosage: 21 MG, ONCE/SINGLE
     Route: 062
     Dates: start: 20100705, end: 20100705
  2. ASPIRIN [Concomitant]
     Dosage: 0.25  TO 1.5 TABLETS; QD
  3. OMEPRAZOL ^ACYFABRIK^ [Concomitant]
     Dosage: 1-0-0
  4. FLUSPI [Concomitant]
     Dosage: 1.5
  5. HEXAL [Concomitant]
     Dosage: UNK, QW
  6. SALBUHEXAL [Concomitant]
     Dosage: 200 HUB DA, 1-0-1

REACTIONS (7)
  - BLINDNESS [None]
  - HEADACHE [None]
  - NAUSEA [None]
  - PHOTOPHOBIA [None]
  - SENSATION OF PRESSURE [None]
  - VISION BLURRED [None]
  - VISUAL IMPAIRMENT [None]
